FAERS Safety Report 8541691-3 (Version None)
Quarter: 2012Q3

REPORT INFORMATION
  Report Type: 
  Country: None (occurrence: None)
  Receive Date: 20120726
  Receipt Date: 20120719
  Transmission Date: 20120928
  Serious: Yes (Other)
  Sender: FDA-Public Use
  Company Number: CHPA2012US015826

PATIENT
  Sex: Female
  Weight: 65.76 kg

DRUGS (5)
  1. DIOVAN [Concomitant]
  2. PREVACID 24 HR [Suspect]
     Indication: GASTRIC DISORDER
     Dosage: UNK, UNK
  3. NEXIUM [Suspect]
     Indication: GASTRIC DISORDER
     Dosage: UNK, UNK
  4. PROTONIX [Suspect]
     Indication: GASTRIC DISORDER
     Dosage: 40 MG, BID
     Route: 048
  5. LIPITOR [Suspect]
     Indication: BLOOD CHOLESTEROL INCREASED
     Dosage: 10 MG, QD
     Route: 048

REACTIONS (6)
  - MALAISE [None]
  - GASTRIC ULCER [None]
  - HELICOBACTER INFECTION [None]
  - DRUG INEFFECTIVE FOR UNAPPROVED INDICATION [None]
  - DYSPEPSIA [None]
  - ENTERITIS INFECTIOUS [None]
